FAERS Safety Report 7801869-0 (Version None)
Quarter: 2011Q4

REPORT INFORMATION
  Report Type: 
  Country: None (occurrence: None)
  Receive Date: 20111007
  Receipt Date: 20111003
  Transmission Date: 20120403
  Serious: Yes (Hospitalization)
  Sender: FDA-Public Use
  Company Number: BY-PFIZER INC-2011236010

PATIENT
  Age: 25 Year
  Sex: Male

DRUGS (2)
  1. ZYVOX [Suspect]
     Dosage: 600 MG, 2X/DAY
     Route: 042
     Dates: start: 20110905, end: 20110909
  2. ZYVOX [Suspect]
     Indication: SEPSIS
     Dosage: 600 MG, 2X/DAY
     Route: 042
     Dates: start: 20110803, end: 20110830

REACTIONS (2)
  - CONDITION AGGRAVATED [None]
  - PATHOGEN RESISTANCE [None]
